FAERS Safety Report 25170579 (Version 1)
Quarter: 2025Q2

REPORT INFORMATION
  Report Type: Spontaneous
  Country: CN (occurrence: CN)
  Receive Date: 20250408
  Receipt Date: 20250408
  Transmission Date: 20250717
  Serious: Yes (Hospitalization)
  Sender: BEIGENE
  Company Number: CN-BEIGENE-BGN-2025-005212

PATIENT
  Age: 74 Year
  Weight: 60 kg

DRUGS (8)
  1. TISLELIZUMAB [Suspect]
     Active Substance: TISLELIZUMAB
     Indication: Hepatic cancer
  2. TISLELIZUMAB [Suspect]
     Active Substance: TISLELIZUMAB
     Route: 041
  3. TISLELIZUMAB [Suspect]
     Active Substance: TISLELIZUMAB
     Route: 041
  4. TISLELIZUMAB [Suspect]
     Active Substance: TISLELIZUMAB
  5. THALIDOMIDE [Suspect]
     Active Substance: THALIDOMIDE
     Indication: Hepatic cancer
     Dosage: 50 MILLIGRAM, QD
     Route: 048
  6. THALIDOMIDE [Suspect]
     Active Substance: THALIDOMIDE
     Dosage: 50 MILLIGRAM, QD
  7. LENVATINIB MESYLATE [Suspect]
     Active Substance: LENVATINIB MESYLATE
     Indication: Hepatic cancer
     Route: 048
  8. LENVATINIB MESYLATE [Suspect]
     Active Substance: LENVATINIB MESYLATE

REACTIONS (1)
  - Hepatic function abnormal [Recovering/Resolving]
